FAERS Safety Report 8134162-X (Version None)
Quarter: 2012Q1

REPORT INFORMATION
  Report Type: 
  Country: None (occurrence: None)
  Receive Date: 20120213
  Receipt Date: 20120213
  Transmission Date: 20120608
  Serious: No
  Sender: FDA-Public Use
  Company Number: None

PATIENT
  Age: 51 Year
  Sex: Male

DRUGS (1)
  1. FORTEO [Suspect]
     Indication: OSTEOPOROSIS
     Dosage: FORTEO 20MCG  DAILY SUBCUTANEOUSLY
     Route: 058
     Dates: start: 20111215, end: 20120131

REACTIONS (4)
  - DIZZINESS [None]
  - IMMEDIATE POST-INJECTION REACTION [None]
  - BACK PAIN [None]
  - BURNING SENSATION [None]
